FAERS Safety Report 7897932-9 (Version None)
Quarter: 2011Q4

REPORT INFORMATION
  Report Type: 
  Country: None (occurrence: None)
  Receive Date: 20111103
  Receipt Date: 20111024
  Transmission Date: 20120403
  Serious: Yes (Hospitalization, Other)
  Sender: FDA-Public Use
  Company Number: 1000024440

PATIENT
  Age: 79 Year
  Sex: Female
  Weight: 55 kg

DRUGS (2)
  1. ROFLUMILAST(ROFLUMILAST) (TABLETS) [Suspect]
     Indication: CHRONIC OBSTRUCTIVE PULMONARY DISEASE
     Dosage: 1 DOSAGE FORM (1 DOSAGE FORMS, 1 IN 1 D),ORAL
     Route: 048
     Dates: start: 20110901, end: 20110901
  2. FORASEQ (BUDESONIDE, FORMOTEROL FUMARATE) (INHALANT)(BUDESONIDE, FORMO [Concomitant]

REACTIONS (11)
  - MALAISE [None]
  - BRONCHITIS [None]
  - PNEUMONIA [None]
  - CHEST DISCOMFORT [None]
  - PALPITATIONS [None]
  - DIZZINESS [None]
  - TREMOR [None]
  - CONSTIPATION [None]
  - MIGRAINE [None]
  - CHRONIC OBSTRUCTIVE PULMONARY DISEASE [None]
  - TERMINAL STATE [None]
